APPROVED DRUG PRODUCT: DICLOFENAC POTASSIUM
Active Ingredient: DICLOFENAC POTASSIUM
Strength: 50MG
Dosage Form/Route: TABLET;ORAL
Application: A075470 | Product #001
Applicant: SUN PHARMACEUTICAL INDUSTRIES INC
Approved: Feb 21, 2002 | RLD: No | RS: No | Type: DISCN